FAERS Safety Report 9973747 (Version 2)
Quarter: 2014Q1

REPORT INFORMATION
  Report Type: Spontaneous
  Country: US (occurrence: US)
  Receive Date: 20140306
  Receipt Date: 20140306
  Transmission Date: 20141002
  Serious: No
  Sender: FDA-Public Use
  Company Number: US-GILEAD-2012-0054645

PATIENT
  Age: 49 Year
  Sex: Male

DRUGS (2)
  1. VIREAD [Suspect]
     Dosage: 300 MG, QD
     Route: 048
     Dates: start: 20110407
  2. VITAMIN D NOS [Concomitant]
     Dosage: UNK
     Route: 048

REACTIONS (2)
  - Alanine aminotransferase increased [Recovering/Resolving]
  - Aspartate aminotransferase increased [Recovering/Resolving]
